FAERS Safety Report 10918524 (Version 1)
Quarter: 2015Q1

REPORT INFORMATION
  Report Type: Spontaneous
  Country: EG (occurrence: EG)
  Receive Date: 20150316
  Receipt Date: 20150316
  Transmission Date: 20150721
  Serious: Yes (Other)
  Sender: FDA-Public Use
  Company Number: EG-JNJFOC-20150303614

PATIENT

DRUGS (2)
  1. KETAMINE [Suspect]
     Active Substance: KETAMINE
     Indication: SEDATION
     Route: 042
  2. FENTANYL CITRATE. [Suspect]
     Active Substance: FENTANYL CITRATE
     Indication: SEDATION
     Dosage: 1UG/KG OVER 10 MINS BEFORE THE START OF PROCEDURE
     Route: 042

REACTIONS (7)
  - Upper airway obstruction [Unknown]
  - Hypertension [Unknown]
  - Bradycardia [Unknown]
  - Tachyarrhythmia [Unknown]
  - Vomiting [Unknown]
  - Hypotension [Unknown]
  - Nausea [Unknown]
